FAERS Safety Report 18569114 (Version 2)
Quarter: 2021Q1

REPORT INFORMATION
  Report Type: Spontaneous
  Country: CO (occurrence: CO)
  Receive Date: 20201202
  Receipt Date: 20210202
  Transmission Date: 20210419
  Serious: Yes (Death, Life-Threatening, Hospitalization, Other)
  Sender: FDA-Public Use
  Company Number: CO-AMGEN-COLSP2020191946

PATIENT
  Age: 21 Year
  Weight: 47 kg

DRUGS (1)
  1. AMGEVITA [Suspect]
     Active Substance: ADALIMUMAB
     Indication: ANKYLOSING SPONDYLITIS
     Dosage: UNK
     Route: 065
     Dates: start: 202001, end: 20200522

REACTIONS (11)
  - Klebsiella infection [Unknown]
  - Immunosuppression [Unknown]
  - Metabolic acidosis [Unknown]
  - Hypochromic anaemia [Unknown]
  - Disseminated tuberculosis [Unknown]
  - Pulmonary tuberculosis [Unknown]
  - Encephalopathy [Not Recovered/Not Resolved]
  - Multiple organ dysfunction syndrome [Fatal]
  - Intestinal tuberculosis [Unknown]
  - Urosepsis [Unknown]
  - Thrombocytosis [Unknown]

NARRATIVE: CASE EVENT DATE: 2020
